FAERS Safety Report 20688342 (Version 1)
Quarter: 2022Q2

REPORT INFORMATION
  Report Type: Spontaneous
  Country: JP (occurrence: JP)
  Receive Date: 20220408
  Receipt Date: 20220408
  Transmission Date: 20220721
  Serious: Yes (Other)
  Sender: FDA-Public Use
  Company Number: JP-SA-2022SA107045

PATIENT
  Age: 78 Year
  Sex: Female

DRUGS (2)
  1. PLAVIX [Suspect]
     Active Substance: CLOPIDOGREL BISULFATE
     Indication: Thrombosis prophylaxis
     Route: 048
  2. WARFARIN SODIUM [Suspect]
     Active Substance: WARFARIN SODIUM
     Indication: Thrombosis prophylaxis
     Route: 048

REACTIONS (6)
  - Vascular pseudoaneurysm [Unknown]
  - Puncture site pain [Unknown]
  - Puncture site swelling [Unknown]
  - Puncture site induration [Unknown]
  - Bleeding time prolonged [Unknown]
  - Post procedural haematoma [Unknown]
